FAERS Safety Report 11146585 (Version 2)
Quarter: 2015Q2

REPORT INFORMATION
  Report Type: Report from Study
  Country: US (occurrence: US)
  Receive Date: 20150528
  Receipt Date: 20150610
  Transmission Date: 20150821
  Serious: Yes (Hospitalization, Other)
  Sender: FDA-Public Use
  Company Number: US-ABBVIE-15K-163-1396292-00

PATIENT
  Age: 41 Year
  Sex: Male
  Weight: 107.14 kg

DRUGS (4)
  1. LOSARTAN [Concomitant]
     Active Substance: LOSARTAN
     Indication: HYPERTENSION
  2. HUMIRA [Suspect]
     Active Substance: ADALIMUMAB
     Indication: CROHN^S DISEASE
     Route: 065
  3. PRILOSEC [Concomitant]
     Active Substance: OMEPRAZOLE MAGNESIUM
     Indication: GASTROOESOPHAGEAL REFLUX DISEASE
  4. HUMIRA [Suspect]
     Active Substance: ADALIMUMAB
     Route: 065
     Dates: start: 20150401

REACTIONS (9)
  - Large intestine perforation [Unknown]
  - Dyspepsia [Not Recovered/Not Resolved]
  - Hip arthroplasty [Recovered/Resolved]
  - Pain [Recovered/Resolved]
  - Crohn^s disease [Recovered/Resolved]
  - Hernia [Recovered/Resolved]
  - Intervertebral disc operation [Recovered/Resolved]
  - Nephrolithiasis [Recovered/Resolved]
  - Stomach mass [Recovered/Resolved]

NARRATIVE: CASE EVENT DATE: 20150525
